FAERS Safety Report 4998348-5 (Version None)
Quarter: 2006Q2

REPORT INFORMATION
  Report Type: 
  Country: None (occurrence: None)
  Receive Date: 20060508
  Receipt Date: 20060425
  Transmission Date: 20061013
  Serious: Yes (Other)
  Sender: FDA-Public Use
  Company Number: 2006056102

PATIENT
  Sex: Female

DRUGS (1)
  1. AROMASIN [Suspect]
     Indication: BREAST CANCER
     Dates: start: 20060201

REACTIONS (7)
  - DRUG INEFFECTIVE [None]
  - DRY SKIN [None]
  - ERYSIPELAS [None]
  - FEELING HOT [None]
  - OEDEMA PERIPHERAL [None]
  - SCAB [None]
  - SKIN ULCER [None]
